FAERS Safety Report 5974789-4 (Version None)
Quarter: 2008Q4

REPORT INFORMATION
  Report Type: 
  Country: None (occurrence: None)
  Receive Date: 20081201
  Receipt Date: 20080207
  Transmission Date: 20090506
  Serious: No
  Sender: FDA-Public Use
  Company Number: US-AMGEN-KDL264370

PATIENT
  Sex: Female
  Weight: 78.5 kg

DRUGS (7)
  1. ENBREL [Suspect]
     Indication: PSORIATIC ARTHROPATHY
     Route: 058
     Dates: start: 20070101
  2. METHOTREXATE [Concomitant]
     Dates: start: 20050101
  3. DYAZIDE [Concomitant]
  4. FOLIC ACID [Concomitant]
  5. POTASSIUM CHLORIDE [Concomitant]
  6. DARVOCET-N 100 [Concomitant]
  7. DIOVAN [Concomitant]

REACTIONS (2)
  - HYPERKERATOSIS [None]
  - LOCALISED INFECTION [None]
